FAERS Safety Report 9272043 (Version 1)
Quarter: 2013Q2

REPORT INFORMATION
  Report Type: Spontaneous
  Country: US (occurrence: US)
  Receive Date: 20130506
  Receipt Date: 20130506
  Transmission Date: 20140414
  Serious: No
  Sender: FDA-Public Use
  Company Number: US-009507513-1305USA001307

PATIENT
  Sex: Female

DRUGS (2)
  1. NUVARING [Suspect]
     Dosage: UNK
     Route: 067
  2. Z-PAK [Concomitant]

REACTIONS (1)
  - Medical device complication [Unknown]
